FAERS Safety Report 20292039 (Version 9)
Quarter: 2022Q3

REPORT INFORMATION
  Report Type: Spontaneous
  Country: US (occurrence: US)
  Receive Date: 20220104
  Receipt Date: 20220722
  Transmission Date: 20221026
  Serious: Yes (Other)
  Sender: FDA-Public Use
  Company Number: US-ELI_LILLY_AND_COMPANY-US202201000069

PATIENT
  Age: 55 Year
  Sex: Female
  Weight: 48.53 kg

DRUGS (9)
  1. TADALAFIL [Suspect]
     Active Substance: TADALAFIL
     Indication: Pulmonary arterial hypertension
     Dosage: UNK UNK, UNKNOWN
     Route: 065
     Dates: end: 20211224
  2. REMODULIN [Suspect]
     Active Substance: TREPROSTINIL
     Indication: Pulmonary arterial hypertension
     Dosage: 16 NG/KG/MIN, DAILY
     Route: 058
     Dates: start: 20210908
  3. REMODULIN [Suspect]
     Active Substance: TREPROSTINIL
     Dosage: 18.5 NG/KG/MIN, DAILY
     Route: 058
  4. REMODULIN [Suspect]
     Active Substance: TREPROSTINIL
     Dosage: 18.5 NG/KG/MIN, DAILY
     Route: 058
  5. REMODULIN [Suspect]
     Active Substance: TREPROSTINIL
     Dosage: 18.5 NG/KG/MIN, DAILY
     Route: 058
  6. REMODULIN [Suspect]
     Active Substance: TREPROSTINIL
     Dosage: 30.5 NG/KG/MIN
     Route: 058
  7. LORAZEPAM [Suspect]
     Active Substance: LORAZEPAM
     Indication: Vomiting
     Dosage: UNK, UNKNOWN
     Route: 065
  8. LORAZEPAM [Suspect]
     Active Substance: LORAZEPAM
     Indication: Diarrhoea
  9. OPSUMIT [Suspect]
     Active Substance: MACITENTAN
     Indication: Product used for unknown indication
     Dosage: UNK UNK, UNKNOWN
     Route: 065

REACTIONS (20)
  - Syncope [Unknown]
  - Infection [Unknown]
  - Decreased appetite [Unknown]
  - Anisocoria [Unknown]
  - Constipation [Unknown]
  - Feeling abnormal [Unknown]
  - Fluid retention [Unknown]
  - Choking [Unknown]
  - Tongue discomfort [Unknown]
  - Cough [Unknown]
  - Visual impairment [Not Recovered/Not Resolved]
  - Diarrhoea [Not Recovered/Not Resolved]
  - Dizziness [Unknown]
  - Dizziness [Unknown]
  - Dizziness [Not Recovered/Not Resolved]
  - Malaise [Unknown]
  - Retching [Unknown]
  - Vomiting [Not Recovered/Not Resolved]
  - Fatigue [Unknown]
  - Vomiting [Unknown]

NARRATIVE: CASE EVENT DATE: 20210908
